FAERS Safety Report 22001366 (Version 1)
Quarter: 2023Q1

REPORT INFORMATION
  Report Type: Spontaneous
  Country: GT (occurrence: GT)
  Receive Date: 20230216
  Receipt Date: 20230216
  Transmission Date: 20230417
  Serious: Yes (Other)
  Sender: FDA-Public Use
  Company Number: GT-BAYER-2023A017179

PATIENT
  Age: 34 Year
  Sex: Female

DRUGS (2)
  1. YAZ [Suspect]
     Active Substance: DROSPIRENONE\ETHINYL ESTRADIOL
     Indication: Contraception
     Dosage: 1 DF, QD
     Route: 048
     Dates: start: 2022, end: 20230131
  2. METHOTREXATE [Concomitant]
     Active Substance: METHOTREXATE
     Indication: Ankylosing spondylitis
     Dosage: UNK

REACTIONS (9)
  - Syncope [None]
  - Hypotension [Not Recovered/Not Resolved]
  - Tachycardia [None]
  - Dizziness [None]
  - Headache [None]
  - Discomfort [None]
  - Libido decreased [None]
  - Vulvovaginal dryness [None]
  - Irritability [None]
